FAERS Safety Report 21214045 (Version 7)
Quarter: 2022Q4

REPORT INFORMATION
  Report Type: Spontaneous
  Country: US (occurrence: US)
  Receive Date: 20220816
  Receipt Date: 20221228
  Transmission Date: 20230113
  Serious: No
  Sender: FDA-Public Use
  Company Number: US-BRISTOL-MYERS SQUIBB COMPANY-2022-089141

PATIENT
  Age: 75 Year
  Sex: Female

DRUGS (4)
  1. SPRYCEL [Suspect]
     Active Substance: DASATINIB
     Indication: Chronic myeloid leukaemia
     Route: 048
     Dates: start: 20220613
  2. SPRYCEL [Suspect]
     Active Substance: DASATINIB
     Dosage: FREQUENCY- DAILY
     Route: 048
     Dates: start: 20220426
  3. SPRYCEL [Suspect]
     Active Substance: DASATINIB
     Dosage: EXPIRY DATE: 28-02-2025
     Route: 048
     Dates: start: 202210
  4. SPRYCEL [Suspect]
     Active Substance: DASATINIB
     Route: 048
     Dates: start: 20220426

REACTIONS (3)
  - Memory impairment [Unknown]
  - Stress [Unknown]
  - Amnesia [Unknown]

NARRATIVE: CASE EVENT DATE: 20220701
